FAERS Safety Report 12495690 (Version 2)
Quarter: 2016Q2

REPORT INFORMATION
  Report Type: Report from Study
  Country: US (occurrence: US)
  Receive Date: 20160624
  Receipt Date: 20160628
  Transmission Date: 20160815
  Serious: Yes (Death)
  Sender: FDA-Public Use
  Company Number: US-GILEAD-2016-0220333

PATIENT
  Age: 73 Year
  Sex: Male

DRUGS (21)
  1. AMBRISENTAN [Suspect]
     Active Substance: AMBRISENTAN
     Indication: PULMONARY HYPERTENSION
     Dosage: 10 MG, UNK
     Route: 065
     Dates: start: 20120822
  2. NOVOLOG [Concomitant]
     Active Substance: INSULIN ASPART
  3. CITALOPRAM [Concomitant]
     Active Substance: CITALOPRAM HYDROBROMIDE
  4. LANTUS [Concomitant]
     Active Substance: INSULIN GLARGINE
  5. LEVAQUIN [Concomitant]
     Active Substance: LEVOFLOXACIN
  6. FINASTERIDE. [Concomitant]
     Active Substance: FINASTERIDE
  7. POTASSIUM [Concomitant]
     Active Substance: POTASSIUM
  8. LORAZEPAM. [Concomitant]
     Active Substance: LORAZEPAM
  9. SYMBICORT [Concomitant]
     Active Substance: BUDESONIDE\FORMOTEROL FUMARATE DIHYDRATE
  10. TRAZODONE [Concomitant]
     Active Substance: TRAZODONE HYDROCHLORIDE
  11. FUROSEMIDE. [Concomitant]
     Active Substance: FUROSEMIDE
  12. LASIX [Concomitant]
     Active Substance: FUROSEMIDE
  13. DALIRESP [Concomitant]
     Active Substance: ROFLUMILAST
  14. LEVALBUTEROL                       /01419301/ [Concomitant]
  15. BABY ASPIRIN [Concomitant]
     Active Substance: ASPIRIN
  16. SPIRIVA [Concomitant]
     Active Substance: TIOTROPIUM BROMIDE MONOHYDRATE
  17. SPIRONOLACTON [Concomitant]
     Active Substance: SPIRONOLACTONE
  18. VENTOLIN HFA [Concomitant]
     Active Substance: ALBUTEROL SULFATE
  19. CARVEDILOL. [Concomitant]
     Active Substance: CARVEDILOL
  20. AMBRISENTAN [Suspect]
     Active Substance: AMBRISENTAN
     Indication: HYPOXIA
  21. WELLBUTRIN [Concomitant]
     Active Substance: BUPROPION HYDROCHLORIDE

REACTIONS (1)
  - Hypoxia [Fatal]

NARRATIVE: CASE EVENT DATE: 20160619
